FAERS Safety Report 15032258 (Version 1)
Quarter: 2018Q2

REPORT INFORMATION
  Report Type: Spontaneous
  Country: PT (occurrence: PT)
  Receive Date: 20180619
  Receipt Date: 20180619
  Transmission Date: 20180711
  Serious: Yes (Hospitalization)
  Sender: FDA-Public Use
  Company Number: PT-ANIPHARMA-2018-PT-000028

PATIENT
  Age: 56 Year
  Sex: Female

DRUGS (2)
  1. PROPAFENONE HYDROCHLORIDE (NON-SPECIFC) [Suspect]
     Active Substance: PROPAFENONE HYDROCHLORIDE
     Dosage: 3000 MG
     Route: 048
  2. DULOXETINE. [Concomitant]
     Active Substance: DULOXETINE
     Dosage: 60 MG DAILY

REACTIONS (4)
  - Generalised tonic-clonic seizure [Recovered/Resolved]
  - Intentional overdose [Unknown]
  - Cardiac arrest [Recovered/Resolved]
  - Electrocardiogram abnormal [Recovered/Resolved]
